FAERS Safety Report 17009685 (Version 1)
Quarter: 2019Q4

REPORT INFORMATION
  Report Type: Spontaneous
  Country: US (occurrence: US)
  Receive Date: 20190928
  Receipt Date: 20190928
  Transmission Date: 20200122
  Serious: Yes (Hospitalization)
  Sender: FDA-Public Use
  Company Number: None

PATIENT
  Age: 77 Year
  Sex: Female
  Weight: 52.27 kg

DRUGS (1)
  1. TEMOZOLOMIDE. [Suspect]
     Active Substance: TEMOZOLOMIDE
     Dates: end: 20190807

REACTIONS (11)
  - Hyponatraemia [None]
  - Nausea [None]
  - Headache [None]
  - Fatigue [None]
  - Chest pain [None]
  - Dyspnoea [None]
  - Pyrexia [None]
  - Platelet count decreased [None]
  - Insomnia [None]
  - Alopecia [None]
  - Neutrophil count decreased [None]

NARRATIVE: CASE EVENT DATE: 20190904
